FAERS Safety Report 5289265-4 (Version None)
Quarter: 2007Q2

REPORT INFORMATION
  Report Type: 
  Country: None (occurrence: None)
  Receive Date: 20070403
  Receipt Date: 20070403
  Transmission Date: 20071010
  Serious: No
  Sender: FDA-Public Use
  Company Number: None

PATIENT
  Age: 37 Year
  Sex: Male
  Weight: 88.4514 kg

DRUGS (2)
  1. ZYVOX [Suspect]
     Indication: LUNG INFECTION
     Dosage: 1  BID  PO
     Route: 048
     Dates: start: 20040810, end: 20050310
  2. ZYVOX [Suspect]
     Indication: MYCOBACTERIUM ABSCESSUS INFECTION
     Dosage: 1  BID  PO
     Route: 048
     Dates: start: 20040810, end: 20050310

REACTIONS (2)
  - NERVE INJURY [None]
  - NEUROPATHY PERIPHERAL [None]
